FAERS Safety Report 7072769-1 (Version None)
Quarter: 2010Q4

REPORT INFORMATION
  Report Type: 
  Country: None (occurrence: None)
  Receive Date: 20101029
  Receipt Date: 20100228
  Transmission Date: 20110411
  Serious: No
  Sender: FDA-Public Use
  Company Number: A0849566A

PATIENT
  Age: 10 Year
  Sex: Male
  Weight: 31.8 kg

DRUGS (2)
  1. ADVAIR DISKUS 100/50 [Suspect]
     Indication: ASTHMA
     Route: 055
  2. ALBUTEROL [Suspect]
     Indication: ASTHMA
     Route: 065

REACTIONS (2)
  - OVERDOSE [None]
  - TIC [None]
